FAERS Safety Report 8104732-3 (Version None)
Quarter: 2012Q1

REPORT INFORMATION
  Report Type: 
  Country: None (occurrence: None)
  Receive Date: 20120130
  Receipt Date: 20120126
  Transmission Date: 20120608
  Serious: Yes (Other)
  Sender: FDA-Public Use
  Company Number: JP-PFIZER INC-2011308091

PATIENT
  Age: 83 Year
  Sex: Female

DRUGS (2)
  1. AMOBAN [Concomitant]
     Dosage: UNK
  2. HALCION [Suspect]
     Dosage: 0.25 MG, 1X/DAY

REACTIONS (1)
  - CARDIAC FAILURE [None]
